FAERS Safety Report 6256720-X (Version None)
Quarter: 2009Q3

REPORT INFORMATION
  Report Type: 
  Country: None (occurrence: None)
  Receive Date: 20090706
  Receipt Date: 20090624
  Transmission Date: 20100115
  Serious: Yes (Other)
  Sender: FDA-Public Use
  Company Number: DE-BIOGENIDEC-2009BI019966

PATIENT
  Sex: Male

DRUGS (4)
  1. TYSABRI [Suspect]
     Indication: MULTIPLE SCLEROSIS
     Route: 042
  2. ANTIHYPERTENSIVE [Concomitant]
  3. ANTI-DIABETIC [Concomitant]
  4. CORTISONE [Concomitant]

REACTIONS (1)
  - LIVER DISORDER [None]
